FAERS Safety Report 8354491-4 (Version None)
Quarter: 2012Q2

REPORT INFORMATION
  Report Type: 
  Country: None (occurrence: None)
  Receive Date: 20120511
  Receipt Date: 20110208
  Transmission Date: 20120825
  Serious: No
  Sender: FDA-Public Use
  Company Number: US-TEVA-2011000644

PATIENT
  Sex: Female
  Weight: 81.72 kg

DRUGS (5)
  1. NUVIGIL [Suspect]
     Indication: FIBROMYALGIA
  2. SUBOXONE [Concomitant]
  3. CELEXA [Concomitant]
  4. PROTONIX [Concomitant]
  5. NUVIGIL [Suspect]
     Indication: FATIGUE
     Dosage: 150 MILLIGRAM;
     Route: 048
     Dates: start: 20100101

REACTIONS (1)
  - EUPHORIC MOOD [None]
